FAERS Safety Report 6107939-X (Version None)
Quarter: 2009Q1

REPORT INFORMATION
  Report Type: 
  Country: None (occurrence: None)
  Receive Date: 20090309
  Receipt Date: 20090203
  Transmission Date: 20090719
  Serious: No
  Sender: FDA-Public Use
  Company Number: JP-AVENTIS-200910574JP

PATIENT
  Sex: Female

DRUGS (1)
  1. ARAVA [Suspect]
     Dosage: DOSE: 20 MG/WEEK
     Route: 048

REACTIONS (1)
  - DRUG EXPOSURE DURING PREGNANCY [None]
